FAERS Safety Report 4363866-X (Version None)
Quarter: 2004Q2

REPORT INFORMATION
  Report Type: 
  Country: None (occurrence: None)
  Receive Date: 20040521
  Receipt Date: 20040521
  Transmission Date: 20050107
  Serious: Yes (Other)
  Sender: FDA-Public Use
  Company Number: None

PATIENT
  Age: 55 Year
  Sex: Male
  Weight: 65.7716 kg

DRUGS (2)
  1. TAXOL [Suspect]
     Indication: TONSIL CANCER
     Dosage: 40 MG/M2 } WEEKLY
     Dates: start: 20040331, end: 20040504
  2. CARBOPLATIN [Suspect]
     Dosage: 100 MG/M2} WEEKLY

REACTIONS (2)
  - BODY TEMPERATURE INCREASED [None]
  - NEUTROPENIA [None]
